FAERS Safety Report 9410385 (Version 1)
Quarter: 2013Q3

REPORT INFORMATION
  Report Type: Spontaneous
  Country: US (occurrence: US)
  Receive Date: 20130719
  Receipt Date: 20130719
  Transmission Date: 20140515
  Serious: Yes (Hospitalization)
  Sender: FDA-Public Use
  Company Number: US-GLAXOSMITHKLINE-A1032672A

PATIENT
  Sex: Female

DRUGS (28)
  1. ADVAIR [Suspect]
     Indication: ASTHMA
     Dosage: 1PUFF TWICE PER DAY
     Route: 055
     Dates: start: 2001
  2. STEROIDS [Suspect]
     Indication: ASTHMA
     Route: 065
  3. SPIRIVA [Concomitant]
  4. PROAIR HFA [Concomitant]
     Route: 055
  5. ATENOLOL [Concomitant]
  6. MAXIDE [Concomitant]
  7. SINGULAIR [Concomitant]
  8. ZYRTEC [Concomitant]
  9. FLONASE [Concomitant]
  10. TRAMADOL [Concomitant]
  11. FAMOTIDINE [Concomitant]
  12. OMEPRAZOLE [Concomitant]
  13. POTASSIUM CHLORIDE [Concomitant]
  14. VITAMIN D [Concomitant]
  15. VITAMIN C [Concomitant]
  16. CINNAMON [Concomitant]
  17. VITAMIN B12 [Concomitant]
  18. VITAMIN E [Concomitant]
  19. COQ10 [Concomitant]
  20. COFFEE ORAL [Concomitant]
  21. GARCINIA [Concomitant]
  22. GARCINIA CAMBOGIA [Concomitant]
  23. MULTIVITAMIN WITH ANTIOXIDANTS [Concomitant]
  24. ACIDOPHILUS [Concomitant]
  25. ASPIRIN [Concomitant]
  26. ALBUTEROL NEBULIZER [Concomitant]
  27. ALBUTEROL/IPRATROPIUM [Concomitant]
  28. BUDESONIDE [Concomitant]

REACTIONS (10)
  - Pneumonia [Recovering/Resolving]
  - Intracardiac thrombus [Recovering/Resolving]
  - Pulmonary thrombosis [Recovering/Resolving]
  - Staphylococcal infection [Recovering/Resolving]
  - Diabetes mellitus [Recovering/Resolving]
  - Renal failure [Recovering/Resolving]
  - Cardiac failure congestive [Recovering/Resolving]
  - Malaise [Recovering/Resolving]
  - Chronic obstructive pulmonary disease [Recovering/Resolving]
  - Liver disorder [Recovering/Resolving]
